FAERS Safety Report 8685361 (Version 5)
Quarter: 2013Q4

REPORT INFORMATION
  Report Type: Report from Study
  Country: US (occurrence: US)
  Receive Date: 20120726
  Receipt Date: 20131022
  Transmission Date: 20140711
  Serious: Yes (Hospitalization, Other)
  Sender: FDA-Public Use
  Company Number: US-ACTELION-A-NJ2012-68768

PATIENT
  Age: 61 Year
  Sex: Female

DRUGS (5)
  1. TRACLEER [Suspect]
     Indication: PULMONARY ARTERIAL HYPERTENSION
     Dosage: UNK
     Route: 048
     Dates: start: 20120425
  2. TRACLEER [Suspect]
     Dosage: 125 MG, BID
     Route: 048
     Dates: start: 20120425, end: 201205
  3. SILDENAFIL [Concomitant]
  4. ASPIRIN [Concomitant]
  5. PLAVIX [Concomitant]

REACTIONS (10)
  - Device related infection [Unknown]
  - Coronary artery occlusion [Recovering/Resolving]
  - Coronary arterial stent insertion [Recovering/Resolving]
  - Stent placement [Unknown]
  - Peripheral arterial occlusive disease [Recovering/Resolving]
  - Angioplasty [Recovering/Resolving]
  - Fluid retention [Recovering/Resolving]
  - Oropharyngeal pain [Unknown]
  - Dry throat [Unknown]
  - Cough [Unknown]
